FAERS Safety Report 14022289 (Version 11)
Quarter: 2019Q4

REPORT INFORMATION
  Report Type: Report from Study
  Country: CA (occurrence: CA)
  Receive Date: 20170928
  Receipt Date: 20191230
  Transmission Date: 20200122
  Serious: Yes (Death, Hospitalization)
  Sender: FDA-Public Use
  Company Number: CA-HLSUS-2017-CA-000991

PATIENT
  Age: 63 Year
  Sex: Male

DRUGS (1)
  1. CLOZARIL [Suspect]
     Active Substance: CLOZAPINE
     Indication: PSYCHOTIC DISORDER
     Route: 048
     Dates: start: 20140522, end: 20191210

REACTIONS (10)
  - Leukaemia recurrent [Unknown]
  - Pyrexia [Unknown]
  - Leukopenia [Unknown]
  - Gait disturbance [Unknown]
  - Neutrophilia [Unknown]
  - Leukocytosis [Unknown]
  - Malaise [Unknown]
  - Death [Fatal]
  - Neutropenia [Unknown]
  - Lymphoma [Not Recovered/Not Resolved]

NARRATIVE: CASE EVENT DATE: 20171031
